FAERS Safety Report 15500675 (Version 2)
Quarter: 2018Q4

REPORT INFORMATION
  Report Type: Spontaneous
  Country: US (occurrence: US)
  Receive Date: 20181015
  Receipt Date: 20181112
  Transmission Date: 20190205
  Serious: Yes (Other)
  Sender: FDA-Public Use
  Company Number: US-BAUSCH-BL-2018-027262

PATIENT
  Age: 77 Year
  Sex: Female
  Weight: 55.84 kg

DRUGS (3)
  1. OCEAN SALINE NASAL SPRAY [Suspect]
     Active Substance: SODIUM CHLORIDE
     Indication: NASAL DRYNESS
     Dosage: AT NIGHT BEFORE BED
     Route: 045
     Dates: start: 201801, end: 201809
  2. PREDNISONE. [Concomitant]
     Active Substance: PREDNISONE
     Indication: PRODUCT USED FOR UNKNOWN INDICATION
     Dosage: SHE WAS ON HER THIRD COURSE OF PREDNISONE SINCE MAR/2018
     Route: 048
     Dates: start: 201803
  3. PREDNISONE. [Concomitant]
     Active Substance: PREDNISONE
     Dosage: 20 MG WITH BREAKFAST AND LUNCH FOR 5 DAYS
     Route: 048
     Dates: start: 20181002

REACTIONS (4)
  - Cough [Not Recovered/Not Resolved]
  - Bacterial infection [Not Recovered/Not Resolved]
  - Weight decreased [Not Recovered/Not Resolved]
  - Pleural effusion [Not Recovered/Not Resolved]

NARRATIVE: CASE EVENT DATE: 2018
